FAERS Safety Report 17245485 (Version 1)
Quarter: 2020Q1

REPORT INFORMATION
  Report Type: Spontaneous
  Country: CA (occurrence: CA)
  Receive Date: 20200108
  Receipt Date: 20200108
  Transmission Date: 20200409
  Serious: Yes (Other)
  Sender: FDA-Public Use
  Company Number: CA-AUROBINDO-AUR-APL-2020-000462

PATIENT
  Age: 55 Year
  Sex: Female

DRUGS (59)
  1. APO-DICLOFENAC [Interacting]
     Active Substance: DICLOFENAC
     Indication: RHEUMATOID ARTHRITIS
     Dosage: UNK
     Route: 065
  2. HUMIRA [Interacting]
     Active Substance: ADALIMUMAB
     Indication: RHEUMATOID ARTHRITIS
     Dosage: 40 MILLIGRAM
     Route: 058
  3. HYDROXYCHLOROQUINE [Interacting]
     Active Substance: HYDROXYCHLOROQUINE
     Indication: PRODUCT USED FOR UNKNOWN INDICATION
     Dosage: UNK
     Route: 065
  4. NAPROXEN. [Interacting]
     Active Substance: NAPROXEN
     Indication: RHEUMATOID ARTHRITIS
     Dosage: UNK
     Route: 065
  5. ORENCIA [Interacting]
     Active Substance: ABATACEPT
     Indication: PRODUCT USED FOR UNKNOWN INDICATION
     Dosage: 750.0 MILLIGRAM, EVERY WEEK
     Route: 058
  6. PREDNISONE. [Interacting]
     Active Substance: PREDNISONE
     Indication: RHEUMATOID ARTHRITIS
     Dosage: UNK
     Route: 065
  7. SULFASALAZINE. [Interacting]
     Active Substance: SULFASALAZINE
     Indication: PRODUCT USED FOR UNKNOWN INDICATION
     Dosage: UNK
     Route: 065
  8. ORENCIA [Interacting]
     Active Substance: ABATACEPT
     Indication: PRODUCT USED FOR UNKNOWN INDICATION
     Dosage: UNK
     Route: 065
  9. ORENCIA [Interacting]
     Active Substance: ABATACEPT
     Dosage: UNK
     Route: 065
  10. CELECOXIB. [Suspect]
     Active Substance: CELECOXIB
     Indication: RHEUMATOID ARTHRITIS
     Dosage: UNK
     Route: 065
  11. ACTEMRA [Interacting]
     Active Substance: TOCILIZUMAB
     Indication: PRODUCT USED FOR UNKNOWN INDICATION
     Dosage: UNK
     Route: 065
  12. PERPHENAZINE AND AMITRIPTYLINE HYDROCHLORIDE [Interacting]
     Active Substance: AMITRIPTYLINE HYDROCHLORIDE\PERPHENAZINE
     Dosage: UNK
     Route: 065
  13. APO-LEFLUNOMIDE [Interacting]
     Active Substance: LEFLUNOMIDE
     Indication: PRODUCT USED FOR UNKNOWN INDICATION
     Dosage: UNK
     Route: 065
  14. APO-PREDNISONE [Interacting]
     Active Substance: PREDNISONE
     Dosage: UNK
     Route: 065
  15. ARTHROTEC [Interacting]
     Active Substance: DICLOFENAC SODIUM\MISOPROSTOL
     Indication: RHEUMATOID ARTHRITIS
     Dosage: UNK
     Route: 065
  16. XELJANZ [Interacting]
     Active Substance: TOFACITINIB CITRATE
     Indication: RHEUMATOID ARTHRITIS
     Dosage: 5.0 MILLIGRAM, TWO TIMES A DAY
     Route: 048
  17. METHOTREXATE. [Interacting]
     Active Substance: METHOTREXATE
     Indication: RHEUMATOID ARTHRITIS
     Dosage: UNK
     Route: 042
  18. METHOTREXATE. [Interacting]
     Active Substance: METHOTREXATE
     Indication: RHEUMATOID ARTHRITIS
     Dosage: UNK
     Route: 065
  19. METHOTREXATE. [Interacting]
     Active Substance: METHOTREXATE
     Indication: RHEUMATOID ARTHRITIS
     Dosage: UNK
     Route: 048
  20. PREGABALIN CAPSULES [Interacting]
     Active Substance: PREGABALIN
     Indication: PRODUCT USED FOR UNKNOWN INDICATION
     Dosage: UNK
     Route: 065
  21. APO-PREDNISONE [Interacting]
     Active Substance: PREDNISONE
     Indication: RHEUMATOID ARTHRITIS
     Dosage: 5 MILLIGRAM
     Route: 065
  22. ARAVA [Interacting]
     Active Substance: LEFLUNOMIDE
     Indication: PRODUCT USED FOR UNKNOWN INDICATION
     Dosage: UNK
     Route: 065
  23. ETANERCEPT [Interacting]
     Active Substance: ETANERCEPT
     Indication: RHEUMATOID ARTHRITIS
     Dosage: UNK
     Route: 065
  24. LEFLUNOMIDE. [Interacting]
     Active Substance: LEFLUNOMIDE
     Indication: PRODUCT USED FOR UNKNOWN INDICATION
     Dosage: UNK
     Route: 065
  25. METHOTREXATE. [Interacting]
     Active Substance: METHOTREXATE
     Indication: RHEUMATOID ARTHRITIS
     Dosage: UNK
     Route: 058
  26. NIFEDIPINE. [Interacting]
     Active Substance: NIFEDIPINE
     Indication: RHEUMATOID ARTHRITIS
     Dosage: UNK
     Route: 065
  27. CELECOXIB. [Interacting]
     Active Substance: CELECOXIB
     Indication: RHEUMATOID ARTHRITIS
     Dosage: UNK
     Route: 065
  28. ENBREL [Interacting]
     Active Substance: ETANERCEPT
     Indication: RHEUMATOID ARTHRITIS
     Dosage: 50 MILLIGRAM, EVERY WEEK
     Route: 058
  29. HYDROXYCHLOROQUINE [Interacting]
     Active Substance: HYDROXYCHLOROQUINE
     Dosage: UNK
     Route: 065
  30. HYDROXYCHLOROQUINE SULFATE. [Interacting]
     Active Substance: HYDROXYCHLOROQUINE SULFATE
     Indication: RHEUMATOID ARTHRITIS
     Dosage: UNK
     Route: 065
  31. LYRICA [Interacting]
     Active Substance: PREGABALIN
     Indication: RHEUMATOID ARTHRITIS
     Dosage: UNK
     Route: 065
  32. METHOTREXATE. [Interacting]
     Active Substance: METHOTREXATE
     Dosage: UNK
     Route: 048
  33. METHOTREXATE. [Interacting]
     Active Substance: METHOTREXATE
     Dosage: UNK
     Route: 051
  34. AMITRIPTYLINE [Interacting]
     Active Substance: AMITRIPTYLINE
     Indication: RHEUMATOID ARTHRITIS
     Dosage: UNK
     Route: 065
  35. AMITRIPTYLINE [Interacting]
     Active Substance: AMITRIPTYLINE
     Dosage: UNK
     Route: 065
  36. AZATHIOPRINE. [Interacting]
     Active Substance: AZATHIOPRINE
     Indication: PRODUCT USED FOR UNKNOWN INDICATION
     Dosage: UNK
     Route: 065
  37. CELEBREX [Interacting]
     Active Substance: CELECOXIB
     Indication: ARTHRITIS
     Dosage: UNK
     Route: 065
  38. METHOTREXATE. [Interacting]
     Active Substance: METHOTREXATE
     Dosage: UNK
     Route: 058
  39. XELJANZ [Interacting]
     Active Substance: TOFACITINIB CITRATE
     Indication: RHEUMATOID ARTHRITIS
     Dosage: UNK
     Route: 065
  40. METHOTREXATE. [Interacting]
     Active Substance: METHOTREXATE
     Dosage: UNK
     Route: 065
  41. PREGABALIN. [Interacting]
     Active Substance: PREGABALIN
     Indication: RHEUMATOID ARTHRITIS
     Dosage: UNK
     Route: 065
  42. APO-NAPROXEN [Interacting]
     Active Substance: NAPROXEN
     Indication: RHEUMATOID ARTHRITIS
     Dosage: UNK
     Route: 065
  43. DICLOFENAC [Interacting]
     Active Substance: DICLOFENAC
     Indication: RHEUMATOID ARTHRITIS
     Dosage: UNK
     Route: 065
  44. HYDROXYCHLOROQUINE SULFATE. [Interacting]
     Active Substance: HYDROXYCHLOROQUINE SULFATE
     Dosage: UNK
     Route: 065
  45. METHOTREXATE. [Interacting]
     Active Substance: METHOTREXATE
     Indication: RHEUMATOID ARTHRITIS
     Dosage: UNK
     Route: 051
  46. ALLOPURINOL. [Interacting]
     Active Substance: ALLOPURINOL
     Indication: RHEUMATOID ARTHRITIS
     Dosage: UNK
     Route: 065
  47. AMITRIPTYLINE [Interacting]
     Active Substance: AMITRIPTYLINE
     Indication: RHEUMATOID ARTHRITIS
     Dosage: UNK
     Route: 065
  48. PERPHENAZINE AND AMITRIPTYLINE HYDROCHLORIDE [Interacting]
     Active Substance: AMITRIPTYLINE HYDROCHLORIDE\PERPHENAZINE
     Indication: RHEUMATOID ARTHRITIS
     Dosage: UNK
     Route: 065
  49. APO-AZATHIOPRINE [Interacting]
     Active Substance: AZATHIOPRINE
     Indication: PRODUCT USED FOR UNKNOWN INDICATION
     Dosage: UNK
     Route: 065
  50. APO-DICLO [Interacting]
     Active Substance: DICLOFENAC SODIUM
     Indication: RHEUMATOID ARTHRITIS
     Dosage: UNK
     Route: 065
  51. ENBREL [Interacting]
     Active Substance: ETANERCEPT
     Dosage: UNK
     Route: 065
  52. MISOPROSTOL. [Interacting]
     Active Substance: MISOPROSTOL
     Indication: RHEUMATOID ARTHRITIS
     Dosage: UNK
     Route: 065
  53. NAPROSYN [Interacting]
     Active Substance: NAPROXEN
     Indication: RHEUMATOID ARTHRITIS
     Dosage: UNK
     Route: 065
  54. XELJANZ [Interacting]
     Active Substance: TOFACITINIB CITRATE
     Indication: RHEUMATOID ARTHRITIS
     Dosage: 5 MILLIGRAM, TWO TIMES A DAY
     Route: 065
  55. CELEBREX [Interacting]
     Active Substance: CELECOXIB
     Indication: RHEUMATOID ARTHRITIS
     Dosage: UNK
     Route: 065
  56. DICLOFENAC [Interacting]
     Active Substance: DICLOFENAC
     Dosage: UNK
     Route: 065
  57. DICLOFENAC SODIUM. [Interacting]
     Active Substance: DICLOFENAC SODIUM
     Indication: RHEUMATOID ARTHRITIS
     Dosage: UNK
     Route: 065
  58. RITUXIMAB. [Interacting]
     Active Substance: RITUXIMAB
     Indication: PRODUCT USED FOR UNKNOWN INDICATION
     Dosage: 2000 MILLIGRAM
     Route: 042
  59. TOFACITINIB [Concomitant]
     Active Substance: TOFACITINIB
     Indication: PRODUCT USED FOR UNKNOWN INDICATION
     Dosage: UNK
     Route: 065

REACTIONS (26)
  - Product complaint [Not Recovered/Not Resolved]
  - Therapeutic response decreased [Not Recovered/Not Resolved]
  - Malaise [Not Recovered/Not Resolved]
  - Off label use [Not Recovered/Not Resolved]
  - Anaphylactic reaction [Not Recovered/Not Resolved]
  - Impaired work ability [Not Recovered/Not Resolved]
  - Rash [Not Recovered/Not Resolved]
  - Contraindicated product administered [Not Recovered/Not Resolved]
  - Asthenia [Not Recovered/Not Resolved]
  - Drug ineffective [Not Recovered/Not Resolved]
  - Blood cholesterol increased [Not Recovered/Not Resolved]
  - Gastrooesophageal reflux disease [Not Recovered/Not Resolved]
  - Pain in jaw [Not Recovered/Not Resolved]
  - Arthralgia [Not Recovered/Not Resolved]
  - Mobility decreased [Not Recovered/Not Resolved]
  - Movement disorder [Not Recovered/Not Resolved]
  - Muscle spasms [Not Recovered/Not Resolved]
  - Drug intolerance [Not Recovered/Not Resolved]
  - Pain [Not Recovered/Not Resolved]
  - Rheumatoid arthritis [Not Recovered/Not Resolved]
  - Synovitis [Not Recovered/Not Resolved]
  - Condition aggravated [Not Recovered/Not Resolved]
  - Swelling [Not Recovered/Not Resolved]
  - Wrist deformity [Not Recovered/Not Resolved]
  - Drug interaction [Not Recovered/Not Resolved]
  - Disease recurrence [Not Recovered/Not Resolved]
